FAERS Safety Report 8955481 (Version 2)
Quarter: 2012Q4

REPORT INFORMATION
  Report Type: 
  Country: US (occurrence: US)
  Receive Date: 20121207
  Receipt Date: 20121219
  Transmission Date: 20130627
  Serious: Yes (Death)
  Sender: FDA-Public Use
  Company Number: US-ROCHE-1164369

PATIENT
  Age: 0 Year
  Sex: Male

DRUGS (1)
  1. NUTROPIN [Suspect]
     Indication: FAILURE TO THRIVE
     Route: 058

REACTIONS (1)
  - Hypotension [Fatal]
